FAERS Safety Report 9188615 (Version 2)
Quarter: 2013Q1

REPORT INFORMATION
  Report Type: Report from Study
  Country: AU (occurrence: AU)
  Receive Date: 20130325
  Receipt Date: 20130328
  Transmission Date: 20140127
  Serious: Yes (Hospitalization)
  Sender: FDA-Public Use
  Company Number: AU-JNJFOC-20130303083

PATIENT
  Age: 74 Year
  Sex: Male

DRUGS (21)
  1. ABIRATERONE ACETATE [Suspect]
     Indication: PROSTATE CANCER METASTATIC
     Route: 048
     Dates: start: 20091221, end: 20120924
  2. ABIRATERONE ACETATE [Suspect]
     Indication: PROSTATE CANCER METASTATIC
     Route: 048
     Dates: start: 20121008
  3. PREDNISONE [Suspect]
     Indication: PROSTATE CANCER METASTATIC
     Route: 048
     Dates: start: 20091221
  4. PREDNISONE [Suspect]
     Indication: PROSTATE CANCER METASTATIC
     Route: 048
     Dates: start: 20120924
  5. PREDNISONE [Suspect]
     Indication: PROSTATE CANCER METASTATIC
     Route: 048
     Dates: start: 20121008
  6. ZOLADEX [Concomitant]
     Indication: PROSTATE CANCER
     Route: 058
     Dates: start: 20091221
  7. SIMVASTATIN [Concomitant]
     Indication: MYOCARDIAL ISCHAEMIA
     Route: 048
     Dates: start: 199801
  8. SIMVASTATIN [Concomitant]
     Indication: HYPERCHOLESTEROLAEMIA
     Route: 048
     Dates: start: 199801
  9. ACIMAX [Concomitant]
     Indication: HELICOBACTER INFECTION
     Route: 065
     Dates: start: 200903
  10. ASPIRIN [Concomitant]
     Indication: CARDIOVASCULAR EVENT PROPHYLAXIS
     Route: 065
     Dates: start: 199701
  11. ASPIRIN [Concomitant]
     Indication: MYOCARDIAL ISCHAEMIA
     Route: 065
     Dates: start: 199701
  12. PARACETAMOL [Concomitant]
     Indication: FLANK PAIN
     Route: 048
     Dates: start: 201008
  13. PARACETAMOL [Concomitant]
     Indication: BACK PAIN
     Route: 048
     Dates: start: 201008
  14. B12 [Concomitant]
     Indication: VITAMIN B12 DEFICIENCY
     Route: 030
     Dates: start: 20110603
  15. MICARDIS [Concomitant]
     Indication: MYOCARDIAL ISCHAEMIA
     Route: 048
     Dates: start: 20110705
  16. SLOW K [Concomitant]
     Indication: HYPOKALAEMIA
     Route: 048
     Dates: start: 20110719
  17. AMILORIDE [Concomitant]
     Indication: BLOOD PRESSURE
     Route: 048
     Dates: start: 20110804
  18. AMIODARONE [Concomitant]
     Indication: SUPRAVENTRICULAR TACHYCARDIA
     Route: 048
     Dates: start: 20110813
  19. PANADOL OSTEO [Concomitant]
     Indication: FLANK PAIN
     Route: 048
     Dates: start: 20120703
  20. WARFARIN [Concomitant]
     Indication: PERIPHERAL ARTERY THROMBOSIS
     Route: 048
     Dates: start: 20130107
  21. GOSERELIN ACETATE [Concomitant]
     Indication: HORMONE THERAPY
     Dosage: 10.8 UNSPECIFIED UNITS
     Route: 065
     Dates: start: 200301

REACTIONS (1)
  - Gastroenteritis salmonella [Recovered/Resolved]
